FAERS Safety Report 7720629-2 (Version None)
Quarter: 2011Q3

REPORT INFORMATION
  Report Type: 
  Country: None (occurrence: None)
  Receive Date: 20110831
  Receipt Date: 20110826
  Transmission Date: 20111222
  Serious: Yes (Hospitalization, Disabling)
  Sender: FDA-Public Use
  Company Number: DE-SANOFI-AVENTIS-2011SA050143

PATIENT
  Age: 70 Year
  Sex: Female
  Weight: 86 kg

DRUGS (7)
  1. HMG COA REDUCTASE INHIBITORS [Concomitant]
     Route: 048
  2. TRIAMPUR [Concomitant]
     Route: 048
  3. RAMIPRIL [Concomitant]
     Route: 048
  4. PHENPROCOUMON [Interacting]
     Indication: THROMBOSIS PROPHYLAXIS
     Route: 048
     Dates: start: 20100601, end: 20110724
  5. BISOPROLOL FUMARATE [Concomitant]
     Route: 048
     Dates: start: 20101101
  6. MULTAQ [Suspect]
     Route: 048
     Dates: start: 20101119
  7. BISOPROLOL FUMARATE [Concomitant]
     Route: 048
     Dates: start: 20101101

REACTIONS (4)
  - PROTHROMBIN TIME PROLONGED [None]
  - VITREOUS HAEMORRHAGE [None]
  - DRUG INTERACTION [None]
  - VISUAL ACUITY REDUCED [None]
